FAERS Safety Report 5298540-9 (Version None)
Quarter: 2007Q2

REPORT INFORMATION
  Report Type: 
  Country: None (occurrence: None)
  Receive Date: 20070409
  Receipt Date: 20070322
  Transmission Date: 20071010
  Serious: Yes (Other)
  Sender: FDA-Public Use
  Company Number: 07042071

PATIENT
  Age: 27 Year
  Sex: Male

DRUGS (2)
  1. CARBAMAZEPINE TABLETS USP (CHEWABLE), 100 MG [Suspect]
     Indication: CONVULSION
     Dosage: 100MG, ORAL
     Route: 048
  2. DEPAKOE SPRINKLE CAPSULES (DIVALPROEX) [Suspect]
     Dosage: 125 MG, ORAL
     Route: 048

REACTIONS (1)
  - INTERCEPTED DRUG DISPENSING ERROR [None]
